FAERS Safety Report 17802143 (Version 1)
Quarter: 2020Q2

REPORT INFORMATION
  Report Type: Spontaneous
  Country: US (occurrence: US)
  Receive Date: 20200519
  Receipt Date: 20200519
  Transmission Date: 20200714
  Serious: No
  Sender: FDA-Public Use
  Company Number: US-PFIZER INC-2020195767

PATIENT
  Age: 55 Year
  Sex: Male
  Weight: 81.19 kg

DRUGS (2)
  1. KLONOPIN [Interacting]
     Active Substance: CLONAZEPAM
     Indication: ANXIETY
     Dosage: 0.5 MG, 3X/DAY
     Route: 048
  2. VIAGRA [Suspect]
     Active Substance: SILDENAFIL CITRATE
     Indication: ERECTILE DYSFUNCTION
     Dosage: 100 MG, AS NEEDED
     Route: 048

REACTIONS (2)
  - Therapeutic product effect delayed [Unknown]
  - Drug interaction [Unknown]

NARRATIVE: CASE EVENT DATE: 20200514
